FAERS Safety Report 23410941 (Version 1)
Quarter: 2024Q1

REPORT INFORMATION
  Report Type: Spontaneous
  Country: PL (occurrence: PL)
  Receive Date: 20240117
  Receipt Date: 20240117
  Transmission Date: 20240410
  Serious: Yes (Other)
  Sender: FDA-Public Use
  Company Number: PL-UCBSA-2023060949

PATIENT
  Age: 48 Year
  Sex: Female

DRUGS (8)
  1. TOPIRAMATE [Suspect]
     Active Substance: TOPIRAMATE
     Indication: Tuberous sclerosis complex
     Dosage: 500 MILLIGRAM
     Route: 065
  2. TOPIRAMATE [Suspect]
     Active Substance: TOPIRAMATE
     Indication: Seizure
  3. LAMOTRIGINE [Suspect]
     Active Substance: LAMOTRIGINE
     Indication: Tuberous sclerosis complex
     Dosage: 800 MILLIGRAM
     Route: 065
  4. LAMOTRIGINE [Suspect]
     Active Substance: LAMOTRIGINE
     Indication: Seizure
  5. LACOSAMIDE [Suspect]
     Active Substance: LACOSAMIDE
     Indication: Tuberous sclerosis complex
     Dosage: 400 MILLIGRAM
     Route: 065
  6. LACOSAMIDE [Suspect]
     Active Substance: LACOSAMIDE
     Indication: Seizure
  7. VIGABATRIN [Suspect]
     Active Substance: VIGABATRIN
     Indication: Tuberous sclerosis complex
     Dosage: 3000 MILLIGRAM
     Route: 065
  8. VIGABATRIN [Suspect]
     Active Substance: VIGABATRIN
     Indication: Seizure

REACTIONS (3)
  - Seizure [Unknown]
  - Multiple-drug resistance [Unknown]
  - Off label use [Unknown]
